FAERS Safety Report 7363370-0 (Version None)
Quarter: 2011Q1

REPORT INFORMATION
  Report Type: 
  Country: None (occurrence: None)
  Receive Date: 20110321
  Receipt Date: 20110310
  Transmission Date: 20110831
  Serious: Yes (Other)
  Sender: FDA-Public Use
  Company Number: TH-EISAI INC-E7389-01006-CLI-TH

PATIENT
  Sex: Male
  Weight: 50 kg

DRUGS (8)
  1. CODEPECT [Concomitant]
     Dates: start: 20100126
  2. NIFEDIPINE [Concomitant]
     Dates: start: 20100303
  3. LOPERAMIDE [Concomitant]
     Dates: start: 20100921
  4. FOLIC ACID [Concomitant]
     Dates: start: 20091126
  5. FERROUS FUMARATE [Concomitant]
     Dates: start: 20100525
  6. E7389 (BOLD) [Suspect]
     Indication: NON-SMALL CELL LUNG CANCER
     Dates: start: 20100921
  7. ERLOTINIB [Concomitant]
     Indication: NON-SMALL CELL LUNG CANCER
     Route: 048
     Dates: start: 20100922
  8. TRAMADOL [Concomitant]
     Dates: start: 20091126

REACTIONS (2)
  - WHITE BLOOD CELL COUNT DECREASED [None]
  - NEUTROPHIL COUNT DECREASED [None]
